FAERS Safety Report 7678822-3 (Version None)
Quarter: 2011Q3

REPORT INFORMATION
  Report Type: 
  Country: None (occurrence: None)
  Receive Date: 20110811
  Receipt Date: 20110802
  Transmission Date: 20111222
  Serious: Yes (Other)
  Sender: FDA-Public Use
  Company Number: US-ASTRAZENECA-2011SE28969

PATIENT
  Age: 68 Year
  Sex: Female

DRUGS (1)
  1. NEXIUM [Suspect]
     Route: 048

REACTIONS (5)
  - RENAL DISORDER [None]
  - LIVER DISORDER [None]
  - BLOOD CALCIUM INCREASED [None]
  - CHONDROCALCINOSIS PYROPHOSPHATE [None]
  - BLOOD POTASSIUM ABNORMAL [None]
